FAERS Safety Report 13143230 (Version 3)
Quarter: 2017Q1

REPORT INFORMATION
  Report Type: Report from Study
  Country: US (occurrence: US)
  Receive Date: 20170123
  Receipt Date: 20170306
  Transmission Date: 20170428
  Serious: Yes (Hospitalization)
  Sender: FDA-Public Use
  Company Number: US-BIOGEN-2017BI00345519

PATIENT
  Age: 58 Year
  Sex: Female
  Weight: 58.57 kg

DRUGS (2)
  1. AVONEX [Suspect]
     Active Substance: INTERFERON BETA-1A
     Indication: MULTIPLE SCLEROSIS
     Route: 030
     Dates: start: 20160225
  2. AVONEX [Suspect]
     Active Substance: INTERFERON BETA-1A
     Route: 030
     Dates: start: 20160909

REACTIONS (2)
  - Procedural hypotension [Unknown]
  - Breast cancer stage I [Unknown]

NARRATIVE: CASE EVENT DATE: 20170213
